FAERS Safety Report 7093526-6 (Version None)
Quarter: 2010Q4

REPORT INFORMATION
  Report Type: 
  Country: None (occurrence: None)
  Receive Date: 20101110
  Receipt Date: 20090623
  Transmission Date: 20110411
  Serious: No
  Sender: FDA-Public Use
  Company Number: US-KINGPHARMUSA00001-K200900754

PATIENT
  Sex: Male
  Weight: 90.703 kg

DRUGS (3)
  1. EPIPEN [Suspect]
     Indication: FOOD ALLERGY
     Dosage: 0.3 MG, SINGLE
     Route: 030
     Dates: start: 20090622, end: 20090622
  2. EPIPEN [Suspect]
     Indication: ANAPHYLACTIC REACTION
  3. EFFEXOR [Concomitant]
     Indication: SOCIAL PHOBIA
     Dosage: 75 MG, QD
     Route: 048

REACTIONS (2)
  - DRUG INEFFECTIVE [None]
  - EXPIRED DRUG ADMINISTERED [None]
